FAERS Safety Report 5405813-5 (Version None)
Quarter: 2007Q3

REPORT INFORMATION
  Report Type: 
  Country: None (occurrence: None)
  Receive Date: 20070802
  Receipt Date: 20070723
  Transmission Date: 20080115
  Serious: Yes (Hospitalization)
  Sender: FDA-Public Use
  Company Number: IMP_03048_2007

PATIENT
  Sex: Female

DRUGS (1)
  1. OXYCODONE HCL [Suspect]
     Indication: DRUG USE FOR UNKNOWN INDICATION

REACTIONS (2)
  - HOSPITALISATION [None]
  - UNEVALUABLE EVENT [None]
